FAERS Safety Report 9439195 (Version 1)
Quarter: 2013Q3

REPORT INFORMATION
  Report Type: Spontaneous
  Country: US (occurrence: US)
  Receive Date: 20130803
  Receipt Date: 20130803
  Transmission Date: 20140515
  Serious: No
  Sender: FDA-Public Use
  Company Number: US-009507513-1307USA016294

PATIENT
  Age: 68 Year
  Sex: Female

DRUGS (10)
  1. JANUMET [Suspect]
     Dosage: 50/1000 MG, BID
     Route: 048
     Dates: start: 20130708, end: 20130718
  2. DIOVAN [Concomitant]
  3. PRILOSEC [Concomitant]
  4. VITRON-C [Concomitant]
  5. LETROZOLE [Concomitant]
  6. ZOLOFT [Concomitant]
  7. BACLOFEN [Concomitant]
  8. LIPITOR [Concomitant]
  9. PLAVIX [Concomitant]
  10. VESICARE [Concomitant]

REACTIONS (1)
  - Vomiting [Recovered/Resolved]
